FAERS Safety Report 16105593 (Version 2)
Quarter: 2019Q3

REPORT INFORMATION
  Report Type: Report from Study
  Country: None (occurrence: CO)
  Receive Date: 20190322
  Receipt Date: 20190914
  Transmission Date: 20191004
  Serious: Yes (Hospitalization, Other)
  Sender: FDA-Public Use
  Company Number: CO-ABBVIE-19K-036-2715279-00

PATIENT
  Age: 53 Year
  Sex: Male
  Weight: 74 kg

DRUGS (3)
  1. METHOTREXATE. [Concomitant]
     Active Substance: METHOTREXATE
     Indication: PRODUCT USED FOR UNKNOWN INDICATION
  2. HUMIRA [Suspect]
     Active Substance: ADALIMUMAB
     Indication: ANKYLOSING SPONDYLITIS
     Dosage: HUMIRA AC
     Route: 058
     Dates: end: 20190227
  3. HUMIRA [Suspect]
     Active Substance: ADALIMUMAB
     Indication: ANKYLOSING SPONDYLITIS
     Route: 058
     Dates: start: 20120402

REACTIONS (11)
  - Vertigo [Recovering/Resolving]
  - Vision blurred [Recovering/Resolving]
  - Hypertension [Recovering/Resolving]
  - Blood cholesterol abnormal [Recovering/Resolving]
  - Joint range of motion decreased [Recovering/Resolving]
  - Blood pressure fluctuation [Recovering/Resolving]
  - Headache [Recovered/Resolved]
  - Blood pressure increased [Recovered/Resolved]
  - Ankylosing spondylitis [Recovering/Resolving]
  - Arthralgia [Recovering/Resolving]
  - Muscular weakness [Recovering/Resolving]

NARRATIVE: CASE EVENT DATE: 2018
